FAERS Safety Report 10594585 (Version 3)
Quarter: 2015Q1

REPORT INFORMATION
  Report Type: Spontaneous
  Country: GB (occurrence: GB)
  Receive Date: 20141120
  Receipt Date: 20150312
  Transmission Date: 20150720
  Serious: Yes (Hospitalization, Other)
  Sender: FDA-Public Use
  Company Number: GB-ROCHE-1482473

PATIENT
  Age: 89 Year
  Sex: Female

DRUGS (1)
  1. HERCEPTIN [Suspect]
     Active Substance: TRASTUZUMAB
     Indication: PRODUCT USED FOR UNKNOWN INDICATION
     Route: 058

REACTIONS (12)
  - Pain [Unknown]
  - Palmar-plantar erythrodysaesthesia syndrome [Unknown]
  - Back pain [Unknown]
  - Fall [Unknown]
  - Hip fracture [Unknown]
  - Constipation [Unknown]
  - Nail disorder [Unknown]
  - Insomnia [Unknown]
  - Decreased appetite [Unknown]
  - Diarrhoea [Unknown]
  - Fatigue [Unknown]
  - Nail discolouration [Unknown]

NARRATIVE: CASE EVENT DATE: 20141101
